FAERS Safety Report 4640678-0 (Version None)
Quarter: 2005Q2

REPORT INFORMATION
  Report Type: 
  Country: None (occurrence: None)
  Receive Date: 20050420
  Receipt Date: 20050411
  Transmission Date: 20051028
  Serious: Yes (Other)
  Sender: FDA-Public Use
  Company Number: GB-ABBOTT-05P-167-0297181-00

PATIENT
  Age: 34 Year
  Sex: Female

DRUGS (1)
  1. ERYTHROMYCIN BASE [Suspect]
     Indication: INFECTION
     Route: 048
     Dates: start: 20050324, end: 20050329

REACTIONS (2)
  - COLITIS [None]
  - RECTAL HAEMORRHAGE [None]
